FAERS Safety Report 13277754 (Version 2)
Quarter: 2017Q2

REPORT INFORMATION
  Report Type: Spontaneous
  Country: US (occurrence: US)
  Receive Date: 20170228
  Receipt Date: 20170411
  Transmission Date: 20170830
  Serious: Yes (Other)
  Sender: FDA-Public Use
  Company Number: US-JNJFOC-20170227003

PATIENT
  Age: 65 Year
  Sex: Female

DRUGS (7)
  1. GLYCINE. [Concomitant]
     Active Substance: GLYCINE
  2. MELATONIN [Concomitant]
     Active Substance: MELATONIN
  3. MULTIVITAMINS [Concomitant]
     Active Substance: VITAMINS
  4. IMBRUVICA [Suspect]
     Active Substance: IBRUTINIB
     Indication: CHRONIC LYMPHOCYTIC LEUKAEMIA
     Route: 048
     Dates: start: 20150105
  5. HEXACHLOROPHENE [Concomitant]
     Active Substance: HEXACHLOROPHENE
  6. VITAMIN B12 [Concomitant]
     Active Substance: CYANOCOBALAMIN
  7. VITAMIN D3 [Concomitant]
     Active Substance: CHOLECALCIFEROL

REACTIONS (5)
  - Contusion [Recovered/Resolved]
  - Off label use [Unknown]
  - Humerus fracture [Recovering/Resolving]
  - Fall [Recovering/Resolving]
  - Product use issue [Unknown]

NARRATIVE: CASE EVENT DATE: 20150105
